FAERS Safety Report 8806493 (Version 1)
Quarter: 2012Q4

REPORT INFORMATION
  Report Type: 
  Country: US (occurrence: US)
  Receive Date: 20120925
  Receipt Date: 20120925
  Transmission Date: 20130627
  Serious: No
  Sender: FDA-Public Use
  Company Number: US-009507513-1209USA008805

PATIENT
  Sex: Female

DRUGS (6)
  1. SINGULAIR [Suspect]
     Indication: HYPERSENSITIVITY
     Dosage: UNK, bid
     Route: 048
  2. CYMBALTA [Concomitant]
  3. KLONOPIN [Concomitant]
  4. METFORMIN [Concomitant]
  5. BYETTA [Concomitant]
  6. ZOCOR [Concomitant]

REACTIONS (3)
  - Hypertension [Unknown]
  - Vision blurred [Unknown]
  - Headache [Unknown]
